FAERS Safety Report 21793818 (Version 1)
Quarter: 2022Q4

REPORT INFORMATION
  Report Type: Spontaneous
  Country: US (occurrence: None)
  Receive Date: 20221228
  Receipt Date: 20221228
  Transmission Date: 20230113
  Serious: Yes (Hospitalization)
  Sender: FDA-Public Use
  Company Number: None

PATIENT
  Age: 72 Year
  Sex: Male
  Weight: 76.7 kg

DRUGS (9)
  1. YESCARTA [Suspect]
     Active Substance: AXICABTAGENE CILOLEUCEL
     Indication: Follicular lymphoma
     Dosage: OTHER FREQUENCY : ONCE;?
     Route: 041
     Dates: start: 20221013
  2. ACTEMRA [Concomitant]
     Active Substance: TOCILIZUMAB
     Dates: end: 20221019
  3. dexAMETHasone (Decadron) injection [Concomitant]
     Dates: end: 20221030
  4. anakinra (Kineret) [Concomitant]
     Dates: end: 20221031
  5. acyclovir (Zovirax) [Concomitant]
     Dates: start: 20221013, end: 20221228
  6. levETIRAcetam (Keppra [Concomitant]
     Dates: start: 20221012, end: 20221228
  7. cefepime (Maxipime [Concomitant]
     Dates: end: 20221022
  8. lacosamide (Vimpat) IV [Concomitant]
     Dates: end: 20221022
  9. VANCOMYCIN [Concomitant]
     Active Substance: VANCOMYCIN
     Dates: end: 20221022

REACTIONS (3)
  - Cytokine release syndrome [None]
  - Immune effector cell-associated neurotoxicity syndrome [None]
  - Delirium [None]

NARRATIVE: CASE EVENT DATE: 20221013
